FAERS Safety Report 8780884 (Version 1)
Quarter: 2012Q4

REPORT INFORMATION
  Report Type: Report from Study
  Country: US (occurrence: US)
  Receive Date: 20120913
  Receipt Date: 20120913
  Transmission Date: 20130627
  Serious: Yes (Hospitalization)
  Sender: FDA-Public Use
  Company Number: US-JNJFOC-20120904325

PATIENT
  Age: 18 Year
  Sex: Female
  Weight: 55.1 kg

DRUGS (8)
  1. REMICADE [Suspect]
     Indication: INFLAMMATORY BOWEL DISEASE
     Route: 042
     Dates: start: 20060610, end: 2007
  2. PREDNISONE [Concomitant]
  3. METHOTREXATE [Concomitant]
  4. METHOTREXATE [Concomitant]
     Dates: start: 20120723
  5. MVI [Concomitant]
  6. FOLATE [Concomitant]
  7. TRI-SPRINTEC [Concomitant]
  8. ZOFRAN [Concomitant]

REACTIONS (1)
  - Crohn^s disease [Recovered/Resolved]
